FAERS Safety Report 4382916-8 (Version None)
Quarter: 2004Q2

REPORT INFORMATION
  Report Type: 
  Country: None (occurrence: None)
  Receive Date: 20040617
  Receipt Date: 20040601
  Transmission Date: 20050107
  Serious: Yes (Hospitalization)
  Sender: FDA-Public Use
  Company Number: US-JNJFOC-20040603431

PATIENT
  Age: 49 Year
  Sex: Male

DRUGS (3)
  1. IBUPROFEN [Suspect]
     Dosage: ^SIGNIFICANT AMOUNTS^
  2. DICLOFENAC (DICLOFENAC) [Suspect]
     Dosage: ^SIGNIFICANT AMOUNTS^
  3. KETOROLAC (KETOROLAC) [Suspect]

REACTIONS (5)
  - ENDOCARDITIS STAPHYLOCOCCAL [None]
  - GENERAL PHYSICAL HEALTH DETERIORATION [None]
  - MEDICATION ERROR [None]
  - OSTEOMYELITIS [None]
  - RENAL FAILURE ACUTE [None]
